FAERS Safety Report 24533141 (Version 1)
Quarter: 2024Q4

REPORT INFORMATION
  Report Type: Spontaneous
  Country: IT (occurrence: IT)
  Receive Date: 20241022
  Receipt Date: 20241022
  Transmission Date: 20250114
  Serious: Yes (Other)
  Sender: SANDOZ
  Company Number: IT-NOVPHSZ-PHHY2019IT064013

PATIENT
  Age: 16 Year
  Sex: Female

DRUGS (2)
  1. LITHIUM SULFATE [Suspect]
     Active Substance: LITHIUM SULFATE
     Indication: Major depression
     Dosage: 10 DF, QD
     Route: 065
     Dates: start: 20181031, end: 20181031
  2. QUETIAPINE FUMARATE [Suspect]
     Active Substance: QUETIAPINE FUMARATE
     Indication: Bipolar disorder
     Dosage: 10 DF, TOTAL
     Route: 065

REACTIONS (3)
  - Sopor [Recovering/Resolving]
  - Malaise [Recovering/Resolving]
  - Drug abuse [Recovering/Resolving]

NARRATIVE: CASE EVENT DATE: 20181031
